FAERS Safety Report 21984846 (Version 1)
Quarter: 2023Q1

REPORT INFORMATION
  Report Type: Spontaneous
  Country: US (occurrence: None)
  Receive Date: 20230209
  Receipt Date: 20230209
  Transmission Date: 20230418
  Serious: No
  Sender: FDA-Public Use
  Company Number: None

PATIENT
  Age: 76 Year
  Sex: Female
  Weight: 67.31 kg

DRUGS (9)
  1. CAPECITABINE [Suspect]
     Active Substance: CAPECITABINE
     Indication: Breast cancer female
     Dosage: FREQUENCY : TWICE A DAY;?
     Route: 048
  2. CALCIUM [Concomitant]
     Active Substance: CALCIUM
  3. CYANOCOBALAMIN [Concomitant]
  4. GABAPENTIN [Concomitant]
  5. LORATADINE [Concomitant]
  6. MIRALAX [Concomitant]
  7. PAXLOVID [Concomitant]
  8. PROCTOFOAM HC [Concomitant]
  9. SIMVASTATIN [Concomitant]
     Active Substance: SIMVASTATIN

REACTIONS (1)
  - SARS-CoV-2 test positive [None]
